FAERS Safety Report 11043811 (Version 3)
Quarter: 2015Q2

REPORT INFORMATION
  Report Type: Spontaneous
  Country: CH (occurrence: CH)
  Receive Date: 20150417
  Receipt Date: 20150427
  Transmission Date: 20150821
  Serious: Yes (Hospitalization, Other)
  Sender: FDA-Public Use
  Company Number: 2015SP001208

PATIENT
  Age: 68 Year
  Sex: Female

DRUGS (7)
  1. PARIET [Concomitant]
     Active Substance: RABEPRAZOLE SODIUM
  2. CRESTOR [Concomitant]
     Active Substance: ROSUVASTATIN CALCIUM
  3. TRITTICO [Concomitant]
     Active Substance: TRAZODONE HYDROCHLORIDE
  4. LATUDA [Suspect]
     Active Substance: LURASIDONE HYDROCHLORIDE
     Indication: PRODUCT USED FOR UNKNOWN INDICATION
     Route: 048
     Dates: start: 20150403
  5. ZOLOFT [Concomitant]
     Active Substance: SERTRALINE HYDROCHLORIDE
  6. IRFEN [Concomitant]
     Active Substance: IBUPROFEN
  7. APROVEL [Concomitant]
     Active Substance: IRBESARTAN

REACTIONS (1)
  - Pancreatitis acute [Recovered/Resolved]

NARRATIVE: CASE EVENT DATE: 20150411
